FAERS Safety Report 6482709-1 (Version None)
Quarter: 2009Q4

REPORT INFORMATION
  Report Type: 
  Country: None (occurrence: None)
  Receive Date: 20091209
  Receipt Date: 20091130
  Transmission Date: 20100525
  Serious: Yes (Other)
  Sender: FDA-Public Use
  Company Number: CA-WYE-G04979609

PATIENT
  Sex: Female

DRUGS (3)
  1. PRISTIQ [Suspect]
     Indication: DEPRESSION
     Route: 048
     Dates: start: 20091001, end: 20091026
  2. ELTROXIN [Concomitant]
     Route: 048
  3. LITHIUM [Concomitant]
     Indication: DEPRESSION
     Route: 048

REACTIONS (6)
  - ARTHRALGIA [None]
  - ARTHRITIS [None]
  - BLOOD PRESSURE INCREASED [None]
  - ELECTROCARDIOGRAM ST-T CHANGE [None]
  - OEDEMA PERIPHERAL [None]
  - SWELLING FACE [None]
